FAERS Safety Report 5911377-X (Version None)
Quarter: 2008Q4

REPORT INFORMATION
  Report Type: 
  Country: None (occurrence: None)
  Receive Date: 20081007
  Receipt Date: 20080718
  Transmission Date: 20090506
  Serious: No
  Sender: FDA-Public Use
  Company Number: US-ASTRAZENECA-2008UW15105

PATIENT
  Age: 86 Year
  Sex: Female

DRUGS (18)
  1. ARIMIDEX [Suspect]
     Route: 048
     Dates: start: 20040701
  2. PANTAPROZOLE [Concomitant]
  3. NEXIUM [Concomitant]
     Route: 048
  4. GLYBURIDE [Concomitant]
  5. LISINOPRIL [Concomitant]
  6. ASPIRIN [Concomitant]
  7. METOPROLOL TARTRATE [Concomitant]
  8. ISOSORBIDE [Concomitant]
  9. ACTOS [Concomitant]
  10. SIMVASTATIN [Concomitant]
  11. CALCITRIOL [Concomitant]
  12. LASIX [Concomitant]
  13. PLAVIX [Concomitant]
  14. IRON [Concomitant]
  15. ACTONEL [Concomitant]
  16. CARAFATE [Concomitant]
  17. NITROGLYCERIN [Concomitant]
  18. HYDROCODONE BITARTRATE [Concomitant]

REACTIONS (6)
  - CYST [None]
  - EAR PAIN [None]
  - LOCAL SWELLING [None]
  - MUSCULOSKELETAL PAIN [None]
  - NECK PAIN [None]
  - OROPHARYNGEAL PAIN [None]
